FAERS Safety Report 13274551 (Version 1)
Quarter: 2017Q1

REPORT INFORMATION
  Report Type: Spontaneous
  Country: US (occurrence: US)
  Receive Date: 20170227
  Receipt Date: 20170227
  Transmission Date: 20170428
  Serious: No
  Sender: FDA-Public Use
  Company Number: US-BEH-2017078416

PATIENT
  Age: 62 Year
  Sex: Female

DRUGS (22)
  1. FISH OIL [Concomitant]
     Active Substance: FISH OIL
     Dosage: 1000 MG, UNK
     Route: 065
  2. LUBRICANTE UROLOGICO [Concomitant]
     Route: 065
  3. METHOTREXATE. [Concomitant]
     Active Substance: METHOTREXATE
     Dosage: 2.5 MG, UNK
     Route: 065
  4. ZANTAC [Concomitant]
     Active Substance: RANITIDINE HYDROCHLORIDE
     Dosage: 300 MG, UNK
     Route: 065
  5. VITAMIN E                          /00110501/ [Concomitant]
     Active Substance: TOCOPHEROL
     Dosage: 400 IU, UNK
     Route: 065
  6. ASPIRIN. [Concomitant]
     Active Substance: ASPIRIN
     Dosage: 81 MG, UNK
     Route: 065
  7. LEXAPRO [Concomitant]
     Active Substance: ESCITALOPRAM OXALATE
     Dosage: 20 MG, UNK
     Route: 065
  8. RESTASIS [Concomitant]
     Active Substance: CYCLOSPORINE
     Route: 065
  9. TRIAMCINOLON                       /00031901/ [Concomitant]
     Route: 065
  10. ZANAFLEX [Concomitant]
     Active Substance: TIZANIDINE HYDROCHLORIDE
     Dosage: 4 MG, UNK
     Route: 065
  11. CLONAZEPAM. [Concomitant]
     Active Substance: CLONAZEPAM
     Dosage: 0.5 MG, UNK
     Route: 065
  12. LISINOPRIL + HIDROCLOROTIAZIDA [Concomitant]
     Active Substance: HYDROCHLOROTHIAZIDE\LISINOPRIL
     Dosage: 20-12.5
     Route: 065
  13. METOPROLOL. [Concomitant]
     Active Substance: METOPROLOL
     Dosage: 37.5 MG, UNK
     Route: 065
  14. VITAMIN B12 [Concomitant]
     Active Substance: CYANOCOBALAMIN
     Dosage: 2000 MG, UNK
     Route: 065
  15. VITAMIN D                          /00107901/ [Concomitant]
     Active Substance: ERGOCALCIFEROL
     Dosage: 50000 IU, UNK
     Route: 065
  16. BENADRYL [Concomitant]
     Active Substance: DIPHENHYDRAMINE HYDROCHLORIDE
     Dosage: 25 MG, UNK
     Route: 065
  17. FOLINIC ACID [Concomitant]
     Active Substance: LEUCOVORIN
     Dosage: 4-50-2 MG
     Route: 065
  18. MULTIVITAMIN                       /00097801/ [Concomitant]
     Active Substance: VITAMINS
     Route: 065
  19. PROBIOTIC                          /06395501/ [Concomitant]
     Active Substance: BIFIDOBACTERIUM ANIMALIS SUBSP. LACTIS
     Route: 065
  20. SULFASALAZINE DELAYED-RELEASE [Concomitant]
     Active Substance: SULFASALAZINE
     Dosage: 500 MG, UNK
     Route: 065
  21. HIZENTRA [Suspect]
     Active Substance: HUMAN IMMUNOGLOBULIN G
     Indication: HUMORAL IMMUNE DEFECT
     Dosage: 8 G, QW FOR 6 MONTHS
     Route: 058
     Dates: start: 20170222
  22. BIOTIN [Concomitant]
     Active Substance: BIOTIN
     Dosage: 1000 ?G, UNK
     Route: 065

REACTIONS (7)
  - Headache [Recovered/Resolved]
  - Infusion site induration [Recovered/Resolved]
  - Infusion site pain [Recovered/Resolved]
  - Dizziness [Recovered/Resolved]
  - Infusion site pruritus [Recovered/Resolved]
  - Infusion site swelling [Recovered/Resolved]
  - Infusion site erythema [Recovered/Resolved]

NARRATIVE: CASE EVENT DATE: 20170222
